FAERS Safety Report 14375499 (Version 3)
Quarter: 2018Q1

REPORT INFORMATION
  Report Type: Report from Study
  Country: IE (occurrence: IE)
  Receive Date: 20180111
  Receipt Date: 20180123
  Transmission Date: 20180509
  Serious: Yes (Other)
  Sender: FDA-Public Use
  Company Number: IE-JNJFOC-20180111048

PATIENT
  Sex: Male
  Weight: 105.3 kg

DRUGS (4)
  1. XGEVA [Concomitant]
     Active Substance: DENOSUMAB
     Route: 050
  2. PREDNISONE. [Concomitant]
     Active Substance: PREDNISONE
     Route: 050
  3. ABIRATERONE [Suspect]
     Active Substance: ABIRATERONE
     Indication: PROSTATE CANCER METASTATIC
     Route: 048
     Dates: start: 20160929
  4. CALCIUM [Concomitant]
     Active Substance: CALCIUM
     Route: 050

REACTIONS (2)
  - Asthenia [Unknown]
  - Lymphoma [Not Recovered/Not Resolved]
